FAERS Safety Report 11217718 (Version 1)
Quarter: 2015Q2

REPORT INFORMATION
  Report Type: Spontaneous
  Country: ES (occurrence: ES)
  Receive Date: 20150625
  Receipt Date: 20150625
  Transmission Date: 20150821
  Serious: Yes (Life-Threatening, Other)
  Sender: FDA-Public Use
  Company Number: ES-AMGEN-ESPSP2015061798

PATIENT
  Age: 40 Year
  Sex: Female

DRUGS (4)
  1. LENOGRASTIM [Concomitant]
     Active Substance: LENOGRASTIM
     Indication: NEUTROPENIA
     Dosage: UNK
  2. DOXORUBICIN [Concomitant]
     Active Substance: DOXORUBICIN
     Indication: INVASIVE DUCTAL BREAST CARCINOMA
     Dosage: UNK
  3. FILGRASTIM [Suspect]
     Active Substance: FILGRASTIM
     Indication: NEUTROPENIA
     Dosage: UNK UNK, ONCE A DAY, FOR 3-5 CONSECUTIVE DAYS
     Route: 058
  4. CYCLOPHOSPHAMIDE. [Concomitant]
     Active Substance: CYCLOPHOSPHAMIDE
     Indication: INVASIVE DUCTAL BREAST CARCINOMA
     Dosage: UNK

REACTIONS (14)
  - Faecal incontinence [Recovered/Resolved]
  - Leukocytosis [Unknown]
  - Abdominal pain [Recovered/Resolved]
  - Pallor [Recovered/Resolved]
  - Urticaria [Recovered/Resolved]
  - Presyncope [Recovered/Resolved]
  - Wheezing [Recovered/Resolved]
  - Hyperhidrosis [Recovered/Resolved]
  - Neutropenia [Unknown]
  - Dyspnoea [Recovered/Resolved]
  - Drug hypersensitivity [Recovered/Resolved]
  - Heart rate abnormal [Recovered/Resolved]
  - Hypotension [Recovered/Resolved]
  - Neutrophilia [Unknown]
